FAERS Safety Report 10516365 (Version 1)
Quarter: 2014Q4

REPORT INFORMATION
  Report Type: Spontaneous
  Country: AU (occurrence: AU)
  Receive Date: 20141014
  Receipt Date: 20141014
  Transmission Date: 20150528
  Serious: Yes (Death)
  Sender: FDA-Public Use
  Company Number: AU-MYLANLABS-2014M1007136

PATIENT

DRUGS (6)
  1. OXAZEPAM. [Suspect]
     Active Substance: OXAZEPAM
     Route: 065
  2. OLANZAPINE. [Suspect]
     Active Substance: OLANZAPINE
     Route: 065
  3. DRONABINOL. [Suspect]
     Active Substance: DRONABINOL
     Route: 065
  4. BUPRENORPHINE [Suspect]
     Active Substance: BUPRENORPHINE
     Route: 065
  5. CLONAZEPAM. [Suspect]
     Active Substance: CLONAZEPAM
     Route: 065
  6. DULOXETINE [Suspect]
     Active Substance: DULOXETINE
     Route: 065

REACTIONS (1)
  - Toxicity to various agents [Fatal]
